FAERS Safety Report 7627432-2 (Version None)
Quarter: 2011Q3

REPORT INFORMATION
  Report Type: 
  Country: None (occurrence: None)
  Receive Date: 20110721
  Receipt Date: 20110713
  Transmission Date: 20111222
  Serious: Yes (Other)
  Sender: FDA-Public Use
  Company Number: US-US-EMD SERONO, INC.-7071096

PATIENT
  Sex: Male

DRUGS (1)
  1. REBIF [Suspect]
     Indication: MULTIPLE SCLEROSIS
     Route: 058
     Dates: start: 20080115

REACTIONS (6)
  - HYPOAESTHESIA [None]
  - FATIGUE [None]
  - CHONDROPATHY [None]
  - HYPERTENSION [None]
  - KNEE OPERATION [None]
  - MUSCLE INJURY [None]
